FAERS Safety Report 4412584-8 (Version None)
Quarter: 2004Q2

REPORT INFORMATION
  Report Type: 
  Country: None (occurrence: None)
  Receive Date: 20040630
  Receipt Date: 20040331
  Transmission Date: 20050107
  Serious: No
  Sender: FDA-Public Use
  Company Number: 04P-163-0255721-00

PATIENT
  Age: 54 Year
  Sex: Female
  Weight: 72.5755 kg

DRUGS (25)
  1. HUMIRA [Suspect]
     Indication: RHEUMATOID ARTHRITIS
     Dosage: 40 MG, 1 IN 2 WK, SUBCUTANEOUS
     Route: 058
     Dates: start: 20031219
  2. ESOMEPRAZOLE [Concomitant]
  3. PIOGLITAZONE HCL [Concomitant]
  4. LEVOTHYROXINE SODIUM [Concomitant]
  5. PREDNISONE [Concomitant]
  6. LISINOPRIL [Concomitant]
  7. METHOTREXATE [Concomitant]
  8. LISINOPRIL [Concomitant]
  9. METHOTREXATE [Concomitant]
  10. FOLIC ACID [Concomitant]
  11. B-KOMPLEX ^LECIVA^ [Concomitant]
  12. ALENDRONATE SODIUM [Concomitant]
  13. EUGYNON [Concomitant]
  14. QUININE SULFATE [Concomitant]
  15. ASPIRIN [Concomitant]
  16. ZINC [Concomitant]
  17. LYSINE [Concomitant]
  18. PIRBUTEROL ACETATE [Concomitant]
  19. RANITIDINE [Concomitant]
  20. AMITRIPTYLINE HCL [Concomitant]
  21. TIZANIDINE HCL [Concomitant]
  22. FENOFIBRATE [Concomitant]
  23. METOCLOPRAMIDE [Concomitant]
  24. KADIAN SR CAPSULES [Concomitant]
  25. BOTULINUM TOXIN TYPE A [Concomitant]

REACTIONS (1)
  - INJECTION SITE BURNING [None]
